FAERS Safety Report 5497163-6 (Version None)
Quarter: 2007Q4

REPORT INFORMATION
  Report Type: 
  Country: None (occurrence: None)
  Receive Date: 20071025
  Receipt Date: 20070117
  Transmission Date: 20080405
  Serious: No
  Sender: FDA-Public Use
  Company Number: A0610650A

PATIENT
  Age: 83 Year
  Sex: Female
  Weight: 63.2 kg

DRUGS (11)
  1. ADVAIR DISKUS 100/50 [Suspect]
     Indication: BRONCHIECTASIS
     Dosage: 1PUFF TWICE PER DAY
     Route: 055
     Dates: start: 20060401
  2. ALBUTEROL [Concomitant]
     Route: 055
  3. ZANTAC [Concomitant]
     Dosage: 150MG PER DAY
     Route: 048
  4. FLONASE [Concomitant]
     Dosage: 2SPR PER DAY
  5. MUCINEX [Concomitant]
     Dosage: 600MG TWICE PER DAY
  6. XOPENEX [Concomitant]
     Dosage: 1.25MG TWICE PER DAY
     Route: 055
  7. DIOVAN [Concomitant]
     Dosage: 80MG PER DAY
  8. DIGITEK [Concomitant]
     Dosage: .25MG PER DAY
  9. FUROSEMIDE [Concomitant]
     Dosage: 40MG PER DAY
     Route: 048
  10. POTASSIUM CHLORIDE [Concomitant]
     Dosage: 10MG PER DAY
  11. XANAX [Concomitant]
     Dosage: .25MG FOUR TIMES PER DAY
     Route: 048

REACTIONS (2)
  - DYSPNOEA [None]
  - PEAK EXPIRATORY FLOW RATE DECREASED [None]
